FAERS Safety Report 19563737 (Version 9)
Quarter: 2024Q2

REPORT INFORMATION
  Report Type: Spontaneous
  Country: FR (occurrence: FR)
  Receive Date: 20210715
  Receipt Date: 20240620
  Transmission Date: 20240716
  Serious: Yes (Other)
  Sender: FDA-Public Use
  Company Number: None

PATIENT

DRUGS (39)
  1. METRONIDAZOLE [Suspect]
     Active Substance: METRONIDAZOLE
     Indication: Product used for unknown indication
     Dosage: 1 DOSAGE FORM
     Route: 065
     Dates: start: 20210409, end: 20210414
  2. COLISTIMETHATE SODIUM [Concomitant]
     Active Substance: COLISTIMETHATE SODIUM
     Indication: Product used for unknown indication
     Dosage: 1 DOSAGE FORM, QD
     Route: 065
     Dates: start: 20210507, end: 20210507
  3. LANSOPRAZOLE [Concomitant]
     Active Substance: LANSOPRAZOLE
     Indication: Prophylaxis against gastrointestinal ulcer
     Dosage: 30 MILLIGRAM, QD
     Route: 048
     Dates: start: 20210408
  4. AMIKACIN [Concomitant]
     Active Substance: AMIKACIN
     Indication: Product used for unknown indication
     Dosage: UNK, QD
     Route: 065
     Dates: start: 20210421
  5. AMIKACIN [Concomitant]
     Active Substance: AMIKACIN
     Dosage: UNK
     Route: 065
     Dates: start: 20210504, end: 20210504
  6. AMIKACIN [Concomitant]
     Active Substance: AMIKACIN
     Dosage: UNK
     Route: 065
     Dates: start: 20210514, end: 20210514
  7. MIDAZOLAM [Concomitant]
     Active Substance: MIDAZOLAM
     Indication: Sedation
     Dosage: 50 MILLIGRAM/ PRE-FILLED SYRINGE
     Route: 042
     Dates: start: 20210407
  8. MIDAZOLAM [Concomitant]
     Active Substance: MIDAZOLAM
     Indication: Seizure
     Dosage: 50 MILLIGRAM/ PRE-FILLED SYRINGE
     Route: 042
     Dates: start: 20210407
  9. AZTREONAM [Concomitant]
     Active Substance: AZTREONAM
     Indication: Product used for unknown indication
     Dosage: POWDER AND SOLVENT FOR SOLUTION FOR INJECTION
     Route: 065
     Dates: start: 20210423, end: 20210501
  10. BUMETANIDE [Concomitant]
     Active Substance: BUMETANIDE
     Indication: Product used for unknown indication
     Route: 065
     Dates: start: 20210505
  11. INSULIN NOS [Concomitant]
     Active Substance: INSULIN NOS
     Indication: Product used for unknown indication
     Dosage: UNK DOSAGE FORM
     Route: 065
     Dates: start: 20210326
  12. MOVICOL [Concomitant]
     Active Substance: POLYETHYLENE GLYCOL 3350\POTASSIUM CHLORIDE\SODIUM BICARBONATE\SODIUM CHLORIDE
     Indication: Product used for unknown indication
     Dosage: 1 UNK
     Route: 065
  13. MEROPENEM [Concomitant]
     Active Substance: MEROPENEM
     Indication: Product used for unknown indication
     Dosage: UNK
     Route: 065
     Dates: start: 20210404, end: 20210506
  14. MEROPENEM [Concomitant]
     Active Substance: MEROPENEM
     Dosage: UNK
     Route: 065
     Dates: start: 20210513, end: 20210515
  15. MEROPENEM [Concomitant]
     Active Substance: MEROPENEM
     Dosage: UNK
     Route: 065
     Dates: start: 20210517
  16. MEROPENEM [Concomitant]
     Active Substance: MEROPENEM
     Dosage: UNK
     Route: 065
     Dates: start: 20210405, end: 20210506
  17. HYDROCHLOROTHIAZIDE [Concomitant]
     Active Substance: HYDROCHLOROTHIAZIDE
     Indication: Product used for unknown indication
     Route: 065
     Dates: start: 20210501, end: 20210504
  18. PROPOFOL [Concomitant]
     Active Substance: PROPOFOL
     Indication: Product used for unknown indication
     Dosage: UNK DOSAGE FORM
     Route: 065
     Dates: start: 20210407
  19. URAPIDIL [Concomitant]
     Active Substance: URAPIDIL
     Indication: Product used for unknown indication
     Dosage: 1 DOSAGE FORM
     Route: 065
     Dates: start: 20210418, end: 20210421
  20. NORMACOL [STERCULIA URENS GUM] [Concomitant]
     Indication: Product used for unknown indication
     Dosage: 1 UNK
     Route: 065
  21. AMLODIPINE BESYLATE [Concomitant]
     Active Substance: AMLODIPINE BESYLATE
     Indication: Product used for unknown indication
     Dosage: 5 MILLIGRAM, QD, EVENING
     Route: 065
  22. METFORMIN [Concomitant]
     Active Substance: METFORMIN HYDROCHLORIDE
     Indication: Type 2 diabetes mellitus
     Dosage: 300 MILLIGRAM, QD
     Route: 065
  23. METFORMIN [Concomitant]
     Active Substance: METFORMIN HYDROCHLORIDE
     Dosage: 300 MILLIGRAM, BID
     Route: 065
  24. METFORMIN [Concomitant]
     Active Substance: METFORMIN HYDROCHLORIDE
     Dosage: 1700 MILLIGRAM, QD
     Route: 065
  25. ACYCLOVIR [Concomitant]
     Active Substance: ACYCLOVIR
     Indication: Product used for unknown indication
     Dosage: 1 UNK
     Route: 065
     Dates: start: 20210423, end: 20210430
  26. PIPERACILLIN SODIUM\TAZOBACTAM SODIUM [Concomitant]
     Active Substance: PIPERACILLIN SODIUM\TAZOBACTAM SODIUM
     Indication: Product used for unknown indication
     Dosage: UNK DOSAGE FORM
     Route: 065
     Dates: start: 20210421, end: 20210423
  27. CIPROFLOXACIN [Concomitant]
     Active Substance: CIPROFLOXACIN
     Indication: Product used for unknown indication
     Dosage: 1 DOSAGE FORM
     Route: 065
     Dates: start: 20210502, end: 20210504
  28. CIPROFLOXACIN [Concomitant]
     Active Substance: CIPROFLOXACIN
     Dosage: 1 DOSAGE FORM
     Route: 065
     Dates: start: 20210508, end: 20210515
  29. IMIPENEM [Concomitant]
     Active Substance: IMIPENEM
     Indication: Product used for unknown indication
     Dosage: UNK DOSAGE FORM
     Route: 065
     Dates: start: 20210505, end: 20210518
  30. IMIPENEM [Concomitant]
     Active Substance: IMIPENEM
     Dosage: UNK
     Route: 065
     Dates: start: 20210326
  31. SUFENTANIL [Concomitant]
     Active Substance: SUFENTANIL
     Indication: Sedation
     Dosage: 1 DOSAGE FORM
     Route: 042
     Dates: start: 20210407, end: 20210416
  32. SUFENTANIL [Concomitant]
     Active Substance: SUFENTANIL
     Dosage: UNK
     Route: 065
     Dates: start: 20210421, end: 20210423
  33. HEPARIN SODIUM [Concomitant]
     Active Substance: HEPARIN SODIUM
     Indication: Anticoagulant therapy
     Dosage: 4000 INTERNATIONAL UNIT
     Route: 058
     Dates: start: 20210326
  34. ATRACURIUM BESYLATE [Concomitant]
     Active Substance: ATRACURIUM BESYLATE
     Indication: Product used for unknown indication
     Dosage: UNK DOSAGE FORM
     Route: 065
     Dates: start: 20210408, end: 20210430
  35. FUROSEMIDE [Concomitant]
     Active Substance: FUROSEMIDE
     Indication: Product used for unknown indication
     Dosage: 4000 INTERNATIONAL UNIT
     Route: 058
     Dates: start: 20210326, end: 20210430
  36. CAYSTON [Concomitant]
     Active Substance: AZTREONAM
     Indication: Product used for unknown indication
     Dosage: UNK
     Route: 065
     Dates: start: 20210423
  37. AMLODIPINE BESYLATE [Concomitant]
     Active Substance: AMLODIPINE BESYLATE
     Indication: Product used for unknown indication
     Dosage: 5 MILLIGRAM, QD, EVENING
     Route: 065
  38. POLYETHYLENE GLYCOL 3350 [Concomitant]
     Active Substance: POLYETHYLENE GLYCOL 3350
     Indication: Product used for unknown indication
     Route: 065
  39. STERCULIA URENS [Concomitant]
     Indication: Product used for unknown indication
     Route: 065

REACTIONS (6)
  - Rash maculo-papular [Recovering/Resolving]
  - Thrombocytopenia [Recovered/Resolved]
  - Eosinophilia [Recovering/Resolving]
  - Condition aggravated [Recovered/Resolved]
  - Leukocytosis [Unknown]
  - Hepatic cytolysis [Unknown]

NARRATIVE: CASE EVENT DATE: 20210101
